FAERS Safety Report 7981585-5 (Version None)
Quarter: 2011Q4

REPORT INFORMATION
  Report Type: 
  Country: None (occurrence: None)
  Receive Date: 20111215
  Receipt Date: 20111130
  Transmission Date: 20120403
  Serious: Yes (Death, Other)
  Sender: FDA-Public Use
  Company Number: AU-CELGENEUS-008-21880-11114277

PATIENT
  Sex: Male

DRUGS (4)
  1. DEXAMETHASONE [Concomitant]
     Route: 065
  2. REVLIMID [Suspect]
     Indication: MULTIPLE MYELOMA
     Route: 048
     Dates: start: 20101013
  3. WARFARIN SODIUM [Concomitant]
     Dosage: 3/4MG
     Route: 065
  4. ASPIRIN [Concomitant]
     Dosage: 1 TABLET
     Route: 065

REACTIONS (4)
  - LOBAR PNEUMONIA [None]
  - CARDIAC ARREST [None]
  - OEDEMA PERIPHERAL [None]
  - PULMONARY EMBOLISM [None]
